FAERS Safety Report 6564626-1 (Version None)
Quarter: 2010Q1

REPORT INFORMATION
  Report Type: 
  Country: None (occurrence: None)
  Receive Date: 20100201
  Receipt Date: 20081115
  Transmission Date: 20100710
  Serious: Yes (Death)
  Sender: FDA-Public Use
  Company Number: US-AMGEN-QUU387739

PATIENT
  Age: 64 Year
  Sex: Female

DRUGS (2)
  1. NEULASTA [Suspect]
     Indication: CHEMOTHERAPY
     Route: 065
     Dates: start: 20070101
  2. UNSPECIFIED ANTINEOPLASTIC AGENT [Concomitant]

REACTIONS (4)
  - ALOPECIA [None]
  - BONE PAIN [None]
  - DEATH [None]
  - PAIN [None]
